FAERS Safety Report 20800309 (Version 1)
Quarter: 2022Q2

REPORT INFORMATION
  Report Type: Spontaneous
  Country: US (occurrence: US)
  Receive Date: 20220509
  Receipt Date: 20220509
  Transmission Date: 20220720
  Serious: Yes (Other)
  Sender: FDA-Public Use
  Company Number: US-ONCOPEPPR-00920

PATIENT
  Sex: Male

DRUGS (2)
  1. PEPAXTO [Suspect]
     Active Substance: MELPHALAN FLUFENAMIDE
     Indication: Product used for unknown indication
     Route: 065
     Dates: end: 20220117
  2. PEPAXTO [Suspect]
     Active Substance: MELPHALAN FLUFENAMIDE
     Indication: Product used for unknown indication
     Route: 065
     Dates: start: 20220405

REACTIONS (1)
  - Thrombocytopenia [Unknown]
